FAERS Safety Report 11636333 (Version 1)
Quarter: 2015Q4

REPORT INFORMATION
  Report Type: Spontaneous
  Country: US (occurrence: None)
  Receive Date: 20151015
  Receipt Date: 20151015
  Transmission Date: 20160304
  Serious: No
  Sender: FDA-Public Use
  Company Number: None

PATIENT
  Age: 54 Year
  Sex: Female
  Weight: 95.71 kg

DRUGS (4)
  1. SYNTHROID [Concomitant]
     Active Substance: LEVOTHYROXINE SODIUM
  2. STOOL SOFTENER [Concomitant]
     Active Substance: DOCUSATE CALCIUM
  3. VAGIFEM [Concomitant]
     Active Substance: ESTRADIOL
  4. CONTRAVE [Suspect]
     Active Substance: BUPROPION HYDROCHLORIDE\NALTREXONE HYDROCHLORIDE
     Indication: WEIGHT DECREASED
     Dosage: 2 PILLS AM + 1 PILL PM TWICE DAILY TAKEN BY MOUTH
     Route: 048
     Dates: start: 20150914, end: 20151003

REACTIONS (3)
  - Rash [None]
  - Peripheral swelling [None]
  - Pruritus generalised [None]

NARRATIVE: CASE EVENT DATE: 20151001
